FAERS Safety Report 18642033 (Version 4)
Quarter: 2021Q4

REPORT INFORMATION
  Report Type: Report from Study
  Country: CA (occurrence: CA)
  Receive Date: 20201221
  Receipt Date: 20211007
  Transmission Date: 20220303
  Serious: Yes (Other)
  Sender: FDA-Public Use
  Company Number: CA-BIOGEN-2020BI00959285

PATIENT
  Age: 48 Year
  Sex: Female

DRUGS (13)
  1. AVONEX [Suspect]
     Active Substance: INTERFERON BETA-1A
     Indication: Multiple sclerosis
     Route: 030
     Dates: start: 20161115
  2. AVONEX [Suspect]
     Active Substance: INTERFERON BETA-1A
     Dosage: 1/4 DOSE SEP 21ST, 1/2 DOSE SEP 28TH, NEXT DOSE TO BE TAKEN OCT 3RD AND THEN FULL DOSE NEXT WEEK.
     Route: 065
     Dates: start: 20210921
  3. AVONEX [Suspect]
     Active Substance: INTERFERON BETA-1A
  4. AVONEX [Suspect]
     Active Substance: INTERFERON BETA-1A
  5. AVONEX [Suspect]
     Active Substance: INTERFERON BETA-1A
  6. AVONEX [Suspect]
     Active Substance: INTERFERON BETA-1A
  7. AVONEX [Suspect]
     Active Substance: INTERFERON BETA-1A
  8. AVONEX [Suspect]
     Active Substance: INTERFERON BETA-1A
  9. AVONEX [Suspect]
     Active Substance: INTERFERON BETA-1A
  10. AVONEX [Suspect]
     Active Substance: INTERFERON BETA-1A
  11. AVONEX [Suspect]
     Active Substance: INTERFERON BETA-1A
  12. AVONEX [Suspect]
     Active Substance: INTERFERON BETA-1A
  13. AVONEX [Suspect]
     Active Substance: INTERFERON BETA-1A

REACTIONS (3)
  - Abortion spontaneous [Recovered/Resolved]
  - Maternal exposure during pregnancy [Recovered/Resolved]
  - Multiple sclerosis relapse [Unknown]

NARRATIVE: CASE EVENT DATE: 20161101
